FAERS Safety Report 20694989 (Version 6)
Quarter: 2022Q4

REPORT INFORMATION
  Report Type: Spontaneous
  Country: US (occurrence: US)
  Receive Date: 20220411
  Receipt Date: 20221118
  Transmission Date: 20230113
  Serious: Yes (Other)
  Sender: FDA-Public Use
  Company Number: US-GLAXOSMITHKLINE-US2022061694

PATIENT

DRUGS (4)
  1. ZEJULA [Suspect]
     Active Substance: NIRAPARIB
     Indication: Ovarian cancer
     Dosage: 300 MG, QD
     Route: 048
     Dates: start: 20220321
  2. ZEJULA [Suspect]
     Active Substance: NIRAPARIB
     Dosage: UNK (300 MG PM FOR 1 WEEK, THEN ALTERNATE 200 MG FOR 1 WEEK)
     Route: 048
     Dates: start: 20220321
  3. ZEJULA [Suspect]
     Active Substance: NIRAPARIB
     Dosage: 300 MG, QD
  4. METFORMIN [Suspect]
     Active Substance: METFORMIN HYDROCHLORIDE
     Indication: Product used for unknown indication
     Dosage: UNK

REACTIONS (13)
  - Loss of consciousness [Unknown]
  - Headache [Unknown]
  - Musculoskeletal discomfort [Unknown]
  - Weight decreased [Unknown]
  - Blood pressure increased [Unknown]
  - Vomiting [Unknown]
  - Contusion [Unknown]
  - Fatigue [Unknown]
  - Diarrhoea [Unknown]
  - Retching [Unknown]
  - Blood glucose abnormal [Unknown]
  - Off label use [Unknown]
  - Incorrect dose administered [Unknown]
